FAERS Safety Report 13607207 (Version 3)
Quarter: 2017Q3

REPORT INFORMATION
  Report Type: Spontaneous
  Country: KR (occurrence: KR)
  Receive Date: 20170602
  Receipt Date: 20170824
  Transmission Date: 20171127
  Serious: No
  Sender: FDA-Public Use
  Company Number: KR-009507513-1705KOR015898

PATIENT
  Age: 70 Year
  Sex: Male
  Weight: 54.9 kg

DRUGS (43)
  1. EMEND (FOSAPREPITANT DIMEGLUMINE) [Suspect]
     Active Substance: FOSAPREPITANT DIMEGLUMINE
     Indication: PROPHYLAXIS OF NAUSEA AND VOMITING
     Dosage: 150 MG, ONCE
     Route: 042
     Dates: start: 20161214, end: 20161214
  2. GEMCITABINE [Concomitant]
     Active Substance: GEMCITABINE\GEMCITABINE HYDROCHLORIDE
     Indication: BLADDER CANCER
     Dosage: 1200MG, ONCE
     Route: 042
     Dates: start: 20161214, end: 20161214
  3. FAMOTIDINE. [Concomitant]
     Active Substance: FAMOTIDINE
     Indication: PROPHYLAXIS AGAINST GASTROINTESTINAL ULCER
     Dosage: 20 MG, ONCE
     Route: 042
     Dates: start: 20161214, end: 20161214
  4. FAMOTIDINE. [Concomitant]
     Active Substance: FAMOTIDINE
     Dosage: 20 MG, ONCE
     Route: 042
     Dates: start: 20161214, end: 20161214
  5. FUROSEMIDE. [Concomitant]
     Active Substance: FUROSEMIDE
     Dosage: 20 MG, ONCE
     Route: 042
     Dates: start: 20170210, end: 20170210
  6. POTASSIUM CHLORIDE. [Concomitant]
     Active Substance: POTASSIUM CHLORIDE
     Dosage: 0.5 OTHER, ONCE
     Route: 042
     Dates: start: 20170118, end: 20170118
  7. DEXAMETHASONE. [Concomitant]
     Active Substance: DEXAMETHASONE
     Dosage: 10 MG, ONCE
     Route: 042
     Dates: start: 20170210, end: 20170210
  8. PALONOSETRON HYDROCHLORIDE. [Concomitant]
     Active Substance: PALONOSETRON HYDROCHLORIDE
     Dosage: 1 OTHER, ONCE
     Route: 042
     Dates: start: 20170118, end: 20170118
  9. FUROSEMIDE. [Concomitant]
     Active Substance: FUROSEMIDE
     Indication: PROPHYLAXIS
     Dosage: 20 MG, ONCE
     Route: 042
     Dates: start: 20161214, end: 20161214
  10. MAGNESIUM SULFATE. [Concomitant]
     Active Substance: MAGNESIUM SULFATE
     Dosage: 0.5 OTHER, ONCE
     Route: 042
     Dates: start: 20170118, end: 20170118
  11. MAGNESIUM SULFATE. [Concomitant]
     Active Substance: MAGNESIUM SULFATE
     Dosage: 0.5 OTHER, ONCE
     Route: 042
     Dates: start: 20170210, end: 20170210
  12. CISPLATIN. [Concomitant]
     Active Substance: CISPLATIN
     Dosage: 70 MG, ONCE
     Route: 042
     Dates: start: 20170118, end: 20170118
  13. CISPLATIN. [Concomitant]
     Active Substance: CISPLATIN
     Dosage: 70 MG, ONCE
     Route: 042
     Dates: start: 20170210, end: 20170210
  14. DEXAMETHASONE. [Concomitant]
     Active Substance: DEXAMETHASONE
     Indication: PROPHYLAXIS OF NAUSEA AND VOMITING
     Dosage: 10 MG, ONCE
     Route: 042
     Dates: start: 20161214, end: 20161214
  15. DEXAMETHASONE. [Concomitant]
     Active Substance: DEXAMETHASONE
     Dosage: 5 MG, ONCE
     Route: 042
     Dates: start: 20161221, end: 20161221
  16. FAMOTIDINE. [Concomitant]
     Active Substance: FAMOTIDINE
     Dosage: 20 MG, ONCE
     Route: 042
     Dates: start: 20170217, end: 20170217
  17. EMEND (FOSAPREPITANT DIMEGLUMINE) [Suspect]
     Active Substance: FOSAPREPITANT DIMEGLUMINE
     Dosage: 150 MG, ONCE
     Route: 042
     Dates: start: 20170210, end: 20170210
  18. GEMCITABINE [Concomitant]
     Active Substance: GEMCITABINE\GEMCITABINE HYDROCHLORIDE
     Dosage: 1200MG, ONCE
     Route: 042
     Dates: start: 20161221, end: 20161221
  19. DEXAMETHASONE. [Concomitant]
     Active Substance: DEXAMETHASONE
     Dosage: 10 MG, ONCE
     Route: 042
     Dates: start: 20170118, end: 20170118
  20. DEXAMETHASONE. [Concomitant]
     Active Substance: DEXAMETHASONE
     Dosage: 8 MG, ONCE
     Route: 042
     Dates: start: 20170211, end: 20170211
  21. DEXAMETHASONE. [Concomitant]
     Active Substance: DEXAMETHASONE
     Dosage: 5 MG, ONCE
     Route: 042
     Dates: start: 20170217, end: 20170217
  22. FAMOTIDINE. [Concomitant]
     Active Substance: FAMOTIDINE
     Dosage: 20 MG, ONCE
     Route: 042
     Dates: start: 20170118, end: 20170118
  23. GEMCITABINE [Concomitant]
     Active Substance: GEMCITABINE\GEMCITABINE HYDROCHLORIDE
     Dosage: 1200MG, ONCE
     Route: 042
     Dates: start: 20170210, end: 20170210
  24. DEXAMETHASONE. [Concomitant]
     Active Substance: DEXAMETHASONE
     Dosage: 8 MG, ONCE
     Route: 042
     Dates: start: 20170212, end: 20170212
  25. PALONOSETRON HYDROCHLORIDE. [Concomitant]
     Active Substance: PALONOSETRON HYDROCHLORIDE
     Dosage: 1 OTHER, ONCE
     Route: 042
     Dates: start: 20170210, end: 20170210
  26. CISPLATIN. [Concomitant]
     Active Substance: CISPLATIN
     Indication: BLADDER CANCER
     Dosage: 72 MG, ONCE
     Route: 042
     Dates: start: 20161214, end: 20161214
  27. GEMCITABINE [Concomitant]
     Active Substance: GEMCITABINE\GEMCITABINE HYDROCHLORIDE
     Dosage: 1200MG, ONCE
     Route: 042
     Dates: start: 20170125, end: 20170125
  28. DEXAMETHASONE. [Concomitant]
     Active Substance: DEXAMETHASONE
     Dosage: 8 MG, ONCE
     Route: 042
     Dates: start: 20170119, end: 20170119
  29. DEXAMETHASONE. [Concomitant]
     Active Substance: DEXAMETHASONE
     Dosage: 8 MG, ONCE
     Route: 042
     Dates: start: 20170120, end: 20170120
  30. PALONOSETRON HYDROCHLORIDE. [Concomitant]
     Active Substance: PALONOSETRON HYDROCHLORIDE
     Indication: PROPHYLAXIS OF NAUSEA AND VOMITING
     Dosage: 1 OTHER, ONCE
     Route: 042
     Dates: start: 20161214, end: 20161214
  31. FAMOTIDINE. [Concomitant]
     Active Substance: FAMOTIDINE
     Dosage: 20 MG, ONCE
     Route: 042
     Dates: start: 20170125, end: 20170125
  32. FAMOTIDINE. [Concomitant]
     Active Substance: FAMOTIDINE
     Dosage: 20 MG, ONCE
     Route: 042
     Dates: start: 20170210, end: 20170210
  33. POTASSIUM CHLORIDE. [Concomitant]
     Active Substance: POTASSIUM CHLORIDE
     Indication: ELECTROLYTE SUBSTITUTION THERAPY
     Dosage: 0.5 OTHER, ONCE
     Route: 042
     Dates: start: 20161214, end: 20161214
  34. POTASSIUM CHLORIDE. [Concomitant]
     Active Substance: POTASSIUM CHLORIDE
     Dosage: 0.5 OTHER, ONCE
     Route: 042
     Dates: start: 20170210, end: 20170210
  35. EMEND (FOSAPREPITANT DIMEGLUMINE) [Suspect]
     Active Substance: FOSAPREPITANT DIMEGLUMINE
     Dosage: 150 MG, ONCE
     Route: 042
     Dates: start: 20170118, end: 20170118
  36. GEMCITABINE [Concomitant]
     Active Substance: GEMCITABINE\GEMCITABINE HYDROCHLORIDE
     Dosage: 1200MG, ONCE
     Route: 042
     Dates: start: 20170118, end: 20170118
  37. DEXAMETHASONE. [Concomitant]
     Active Substance: DEXAMETHASONE
     Dosage: 8 MG, ONCE
     Route: 042
     Dates: start: 20161216, end: 20161216
  38. MAGNESIUM SULFATE. [Concomitant]
     Active Substance: MAGNESIUM SULFATE
     Indication: ELECTROLYTE SUBSTITUTION THERAPY
     Dosage: 0.5 OTHER, ONCE
     Route: 042
     Dates: start: 20161214, end: 20161214
  39. CISPLATIN. [Concomitant]
     Active Substance: CISPLATIN
     Dosage: 70 MG, ONCE
     Route: 042
     Dates: start: 20170210, end: 20170210
  40. GEMCITABINE [Concomitant]
     Active Substance: GEMCITABINE\GEMCITABINE HYDROCHLORIDE
     Dosage: 1200MG, ONCE
     Route: 042
     Dates: start: 20170217, end: 20170217
  41. DEXAMETHASONE. [Concomitant]
     Active Substance: DEXAMETHASONE
     Dosage: 8 MG, ONCE
     Route: 042
     Dates: start: 20161215, end: 20161215
  42. DEXAMETHASONE. [Concomitant]
     Active Substance: DEXAMETHASONE
     Dosage: 5 MG, ONCE
     Route: 042
     Dates: start: 20170125, end: 20170125
  43. FUROSEMIDE. [Concomitant]
     Active Substance: FUROSEMIDE
     Dosage: 20 MG, ONCE
     Route: 042
     Dates: start: 20170118, end: 20170118

REACTIONS (2)
  - Insomnia [Recovered/Resolved]
  - Abdominal pain [Recovering/Resolving]

NARRATIVE: CASE EVENT DATE: 20170124
